FAERS Safety Report 7553111-6 (Version None)
Quarter: 2011Q2

REPORT INFORMATION
  Report Type: 
  Country: None (occurrence: None)
  Receive Date: 20110616
  Receipt Date: 20110607
  Transmission Date: 20111010
  Serious: Yes (Hospitalization)
  Sender: FDA-Public Use
  Company Number: US-AMGEN-US276010

PATIENT
  Age: 46 Year
  Sex: Male
  Weight: 92 kg

DRUGS (6)
  1. PLACEBO [Suspect]
     Indication: HYPERPARATHYROIDISM SECONDARY
     Dosage: UNK UNK, QD
     Route: 048
     Dates: start: 20070817
  2. ANTIHYPERTENSIVE MEDICATION NOS [Concomitant]
     Dosage: UNK UNK, UNK
     Route: 048
  3. AMLODIPINE BESYLATE [Concomitant]
     Dosage: 5 MG, QD
     Route: 048
  4. PHOSLO [Concomitant]
     Dosage: 667 MG, QD
     Route: 065
  5. CINACALCET HYDROCHLORIDE [Suspect]
     Indication: HYPERPARATHYROIDISM SECONDARY
     Dosage: UNK UNK, QD
     Route: 048
     Dates: start: 20070817
  6. LISINOPRIL [Concomitant]
     Dosage: 10 MG, QD
     Route: 048

REACTIONS (5)
  - CONVULSION [None]
  - STAPHYLOCOCCAL BACTERAEMIA [None]
  - ENCEPHALOPATHY [None]
  - ENDOCARDITIS [None]
  - HYPOCALCAEMIA [None]
